FAERS Safety Report 17367149 (Version 1)
Quarter: 2020Q1

REPORT INFORMATION
  Report Type: Spontaneous
  Country: FR (occurrence: FR)
  Receive Date: 20200204
  Receipt Date: 20200204
  Transmission Date: 20200409
  Serious: Yes (Hospitalization)
  Sender: FDA-Public Use
  Company Number: FR-MYLANLABS-2020M1012039

PATIENT
  Age: 55 Year
  Sex: Female

DRUGS (4)
  1. LAMOTRIGINE. [Suspect]
     Active Substance: LAMOTRIGINE
     Indication: AFFECTIVE DISORDER
     Dosage: 25 MILLIGRAM, QD
     Route: 048
     Dates: start: 20191022, end: 20191027
  2. DIOSMINE [Concomitant]
     Active Substance: DIOSMIN
     Dosage: UNK
  3. DEPAKOTE [Suspect]
     Active Substance: DIVALPROEX SODIUM
     Indication: AFFECTIVE DISORDER
     Dosage: INCONNUE
     Route: 048
     Dates: start: 20191022, end: 20191022
  4. METEOSPASMYL (ALVERINE CITRATE\DIMETHICONE) [Concomitant]
     Active Substance: ALVERINE CITRATE\DIMETHICONE
     Dosage: UNK

REACTIONS (4)
  - Hepatitis [Recovering/Resolving]
  - Hypersensitivity [Recovering/Resolving]
  - Toxic skin eruption [Recovering/Resolving]
  - Lymphopenia [Recovered/Resolved]

NARRATIVE: CASE EVENT DATE: 20191027
